FAERS Safety Report 9452884 (Version 2)
Quarter: 2013Q3

REPORT INFORMATION
  Report Type: Spontaneous
  Country: US (occurrence: US)
  Receive Date: 20130812
  Receipt Date: 20130916
  Transmission Date: 20140515
  Serious: Yes (Other)
  Sender: FDA-Public Use
  Company Number: US-PFIZER INC-2013231926

PATIENT
  Age: 63 Year
  Sex: Female
  Weight: 74.83 kg

DRUGS (3)
  1. DILANTIN [Suspect]
     Indication: CONVULSION
     Dosage: 300MG (3 CAPSULES OF 100MG),1X/DAY
     Route: 048
     Dates: start: 2009
  2. DILANTIN [Suspect]
     Indication: CONVULSION
     Dosage: 75 MG (ONE AND HALF INFATABS OF 50MG), 1X/DAY
     Route: 048
     Dates: start: 2009
  3. LEVOTHYROXINE [Concomitant]
     Dosage: UNK

REACTIONS (2)
  - Tooth abscess [Recovering/Resolving]
  - Weight decreased [Unknown]
